FAERS Safety Report 8363411-8 (Version None)
Quarter: 2012Q2

REPORT INFORMATION
  Report Type: 
  Country: None (occurrence: None)
  Receive Date: 20120516
  Receipt Date: 20120322
  Transmission Date: 20120825
  Serious: Yes (Other)
  Sender: FDA-Public Use
  Company Number: US-ALEXION-A201101772

PATIENT
  Sex: Male

DRUGS (6)
  1. AMLODIPINE BESYLATE [Concomitant]
     Indication: HYPERTENSION
  2. ANTIHYPERTENSIVES [Concomitant]
     Indication: HYPERTENSION
  3. SOLIRIS [Suspect]
     Indication: HAEMOLYTIC URAEMIC SYNDROME
     Dosage: 600 MG, QW
     Route: 042
     Dates: start: 20110929, end: 20111006
  4. PROTONIX [Concomitant]
     Indication: PROPHYLAXIS
  5. MENVEO/MENACTRA [Concomitant]
     Indication: IMMUNISATION
     Dosage: UNK
     Dates: start: 20111129, end: 20111129
  6. AZITHROMYCIN [Concomitant]
     Indication: ANTIBIOTIC PROPHYLAXIS
     Dosage: 5 MG/KG, QD
     Dates: start: 20110929

REACTIONS (1)
  - SUBCLAVIAN VEIN THROMBOSIS [None]
